FAERS Safety Report 7965455-4 (Version None)
Quarter: 2011Q4

REPORT INFORMATION
  Report Type: 
  Country: None (occurrence: None)
  Receive Date: 20111208
  Receipt Date: 20111129
  Transmission Date: 20120403
  Serious: Yes (Disabling)
  Sender: FDA-Public Use
  Company Number: CA-ASTRAZENECA-2011SE18702

PATIENT
  Age: 69 Year
  Sex: Male

DRUGS (9)
  1. CRESTOR [Suspect]
     Route: 048
     Dates: start: 20110101
  2. FUROSEMIDE [Concomitant]
     Route: 048
  3. CRESTOR [Suspect]
     Route: 048
  4. ASPIRIN [Concomitant]
     Route: 048
  5. NEXIUM [Suspect]
     Route: 048
  6. CELECOXIB [Concomitant]
     Route: 048
  7. MONTELUKAST SODIUM [Concomitant]
     Route: 048
  8. SYMBICORT [Suspect]
     Dosage: 160/4.5 MCG TWO INHALATIONS TWICE DAILY
     Route: 055
  9. RAMIPRIL [Concomitant]
     Route: 048

REACTIONS (2)
  - FALL [None]
  - MUSCLE SPASMS [None]
